FAERS Safety Report 4906510-2 (Version None)
Quarter: 2006Q1

REPORT INFORMATION
  Report Type: 
  Country: None (occurrence: None)
  Receive Date: 20060209
  Receipt Date: 20050705
  Transmission Date: 20060701
  Serious: Yes (Hospitalization)
  Sender: FDA-Public Use
  Company Number: PHRM2005FR02042

PATIENT
  Age: 64 Year
  Sex: Male

DRUGS (6)
  1. FRACTAL [Suspect]
     Indication: HYPERCHOLESTEROLAEMIA
     Dosage: 1 DF, QD
     Route: 048
     Dates: start: 20030511, end: 20050511
  2. TRAMADOL HCL [Concomitant]
     Indication: BACK PAIN
     Route: 048
     Dates: start: 20050114, end: 20050124
  3. THIOCOLCHICOSIDE [Concomitant]
     Indication: BACK PAIN
     Route: 048
     Dates: start: 20050114, end: 20050124
  4. NEXEN [Concomitant]
     Indication: BACK PAIN
     Route: 048
     Dates: start: 20050114, end: 20050124
  5. EUPANTOL [Concomitant]
     Indication: BACK PAIN
     Route: 048
     Dates: start: 20050114, end: 20050124
  6. AMLOR [Concomitant]
     Dosage: UNK, UNK
     Route: 048

REACTIONS (5)
  - BLOOD IMMUNOGLOBULIN E INCREASED [None]
  - DERMATITIS BULLOUS [None]
  - PEMPHIGUS [None]
  - PRURITUS [None]
  - RASH [None]
